FAERS Safety Report 11766673 (Version 3)
Quarter: 2015Q4

REPORT INFORMATION
  Report Type: Spontaneous
  Country: IT (occurrence: IT)
  Receive Date: 20151123
  Receipt Date: 20151231
  Transmission Date: 20160304
  Serious: Yes (Death, Life-Threatening)
  Sender: FDA-Public Use
  Company Number: IT-ACCORD-035512

PATIENT
  Age: 67 Year
  Sex: Male
  Weight: 88 kg

DRUGS (7)
  1. ABRAXANE [Suspect]
     Active Substance: PACLITAXEL
     Indication: PANCREATIC CARCINOMA
     Dosage: STRENGTH: 5 MG/ML
     Route: 042
     Dates: start: 20150716, end: 20151021
  2. HALCION [Concomitant]
     Active Substance: TRIAZOLAM
     Dosage: STRENGTH: 250 MCG
     Route: 048
  3. ARIXTRA [Concomitant]
     Active Substance: FONDAPARINUX SODIUM
     Dosage: STRENGTH: 7.5 MG/0.6 ML
     Route: 058
  4. DEXAMETHASONE. [Concomitant]
     Active Substance: DEXAMETHASONE
     Route: 042
  5. RANITIDINE [Concomitant]
     Active Substance: RANITIDINE\RANITIDINE HYDROCHLORIDE
  6. GEMCITABINE ACCORD [Suspect]
     Active Substance: GEMCITABINE HYDROCHLORIDE
     Indication: PANCREATIC CARCINOMA
     Dosage: STRENGTH: 100 MG/ML
     Route: 042
     Dates: start: 20150716, end: 20151021
  7. DURFENTA [Concomitant]
     Dosage: STRENGTH: 12 MCG/ORA
     Route: 062

REACTIONS (4)
  - Respiratory failure [Unknown]
  - Coma [Unknown]
  - Pancytopenia [Fatal]
  - Sopor [Unknown]

NARRATIVE: CASE EVENT DATE: 20151027
